FAERS Safety Report 16413502 (Version 1)
Quarter: 2019Q2

REPORT INFORMATION
  Report Type: Spontaneous
  Country: FR (occurrence: FR)
  Receive Date: 20190611
  Receipt Date: 20190611
  Transmission Date: 20190711
  Serious: Yes (Hospitalization)
  Sender: FDA-Public Use
  Company Number: FR-ABBVIE-19S-056-2812638-00

PATIENT
  Age: 50 Year
  Sex: Female
  Weight: 75 kg

DRUGS (3)
  1. NORVIR [Suspect]
     Active Substance: RITONAVIR
     Indication: HIV INFECTION
     Route: 048
     Dates: start: 20061031, end: 20180409
  2. PREZISTA [Suspect]
     Active Substance: DARUNAVIR ETHANOLATE
     Indication: HIV INFECTION
     Route: 048
     Dates: start: 20100517, end: 20180409
  3. TRUVADA [Suspect]
     Active Substance: EMTRICITABINE\TENOFOVIR DISOPROXIL FUMARATE
     Indication: HIV INFECTION
     Route: 048
     Dates: start: 20070611, end: 20180409

REACTIONS (1)
  - Osteonecrosis [Recovered/Resolved with Sequelae]

NARRATIVE: CASE EVENT DATE: 201711
